FAERS Safety Report 7719956-4 (Version None)
Quarter: 2011Q3

REPORT INFORMATION
  Report Type: 
  Country: None (occurrence: None)
  Receive Date: 20110831
  Receipt Date: 20110823
  Transmission Date: 20111222
  Serious: No
  Sender: FDA-Public Use
  Company Number: US-BIOGENIDEC-2011BI032635

PATIENT
  Age: 40 Year
  Sex: Female

DRUGS (2)
  1. TYSABRI [Suspect]
     Indication: MULTIPLE SCLEROSIS
     Route: 042
     Dates: start: 20090205
  2. TYSABRI [Suspect]
     Route: 042
     Dates: start: 20110823

REACTIONS (4)
  - DYSKINESIA [None]
  - GAIT DISTURBANCE [None]
  - HYPOAESTHESIA [None]
  - APHASIA [None]
